FAERS Safety Report 12832112 (Version 1)
Quarter: 2016Q4

REPORT INFORMATION
  Report Type: Report from Study
  Country: TN (occurrence: TN)
  Receive Date: 20161010
  Receipt Date: 20161010
  Transmission Date: 20170207
  Serious: No
  Sender: FDA-Public Use
  Company Number: PHHY2016TN022297

PATIENT
  Age: 62 Year
  Sex: Male

DRUGS (3)
  1. TASIGNA [Suspect]
     Active Substance: NILOTINIB
     Indication: CHRONIC MYELOID LEUKAEMIA
     Dosage: 2 DF, BID (200 MG, BID)
     Route: 048
     Dates: start: 201510, end: 201512
  2. TASIGNA [Suspect]
     Active Substance: NILOTINIB
     Dosage: 1 DF, BID (ONE CAPSULE TWICE A DAY)
     Route: 048
     Dates: start: 20161002
  3. TASIGNA [Suspect]
     Active Substance: NILOTINIB
     Dosage: 1 DF, BID (2 TIMES PER DAY)
     Route: 048
     Dates: start: 20160217

REACTIONS (3)
  - Melanoderma [Not Recovered/Not Resolved]
  - Red blood cell count decreased [Recovering/Resolving]
  - White blood cell count decreased [Recovering/Resolving]

NARRATIVE: CASE EVENT DATE: 20160831
